FAERS Safety Report 8493760-4 (Version None)
Quarter: 2012Q3

REPORT INFORMATION
  Report Type: 
  Country: None (occurrence: None)
  Receive Date: 20120706
  Receipt Date: 20120630
  Transmission Date: 20120928
  Serious: Yes (Other)
  Sender: FDA-Public Use
  Company Number: DE-B.I. PHARMACEUTICALS,INC./RIDGEFIELD-2012-DE-01568DE

PATIENT
  Sex: Male
  Weight: 75 kg

DRUGS (8)
  1. PIPAMPERON [Suspect]
     Dosage: 10 ANZ
     Route: 048
     Dates: start: 20120630
  2. METOPROLOL SUCCINATE [Suspect]
     Dosage: 10 ANZ
     Route: 048
     Dates: start: 20120630
  3. MELOXICAM [Suspect]
     Dosage: 10 ANZ
     Route: 048
     Dates: start: 20120630
  4. OPIPRAMOL [Suspect]
     Dosage: 10 ANZ
     Route: 048
     Dates: start: 20120630
  5. HALOPERIDOL [Suspect]
     Dosage: 10 ANZ
     Route: 048
     Dates: start: 20120630
  6. SERTRALINE HYDROCHLORIDE [Suspect]
     Dosage: 10 ANZ
     Route: 048
     Dates: start: 20120630
  7. MIRTAZAPINE [Suspect]
     Dosage: 10 ANZ
     Route: 048
     Dates: start: 20120630
  8. LEVOTHYROXINE SODIUM [Suspect]
     Dosage: 30 ANZ
     Route: 048
     Dates: start: 20120630

REACTIONS (1)
  - SUICIDE ATTEMPT [None]
